FAERS Safety Report 5430781-X (Version None)
Quarter: 2007Q3

REPORT INFORMATION
  Report Type: 
  Country: None (occurrence: None)
  Receive Date: 20070830
  Receipt Date: 20061120
  Transmission Date: 20080115
  Serious: No
  Sender: FDA-Public Use
  Company Number: A0628119A

PATIENT
  Age: 33 Year
  Sex: Female

DRUGS (2)
  1. WELLBUTRIN XL [Suspect]
     Indication: DEPRESSION
     Dosage: 150MG PER DAY
     Route: 048
     Dates: start: 20061001, end: 20061101
  2. NO CONCURRENT MEDICATION [Concomitant]

REACTIONS (2)
  - ALOPECIA [None]
  - THERAPEUTIC RESPONSE UNEXPECTED [None]
